FAERS Safety Report 5573188-7 (Version None)
Quarter: 2007Q4

REPORT INFORMATION
  Report Type: 
  Country: None (occurrence: None)
  Receive Date: 20071224
  Receipt Date: 20071218
  Transmission Date: 20080405
  Serious: Yes (Other)
  Sender: FDA-Public Use
  Company Number: US-BRISTOL-MYERS SQUIBB COMPANY-14019319

PATIENT
  Age: 84 Year
  Sex: Female
  Weight: 68 kg

DRUGS (2)
  1. ABILIFY [Suspect]
     Route: 048
     Dates: start: 20071119
  2. FENTANYL TRANSDERMAL SYSTEM [Suspect]
     Dosage: PATCH CHANGED ON 28NOV2007.
     Dates: start: 20060901

REACTIONS (2)
  - COMA [None]
  - LETHARGY [None]
